FAERS Safety Report 8791557 (Version 7)
Quarter: 2013Q4

REPORT INFORMATION
  Report Type: Spontaneous
  Country: GB (occurrence: None)
  Receive Date: 20120913
  Receipt Date: 20131008
  Transmission Date: 20140711
  Serious: Yes (Hospitalization, Other)
  Sender: FDA-Public Use
  Company Number: AUR-APL-2012-03826

PATIENT
  Age: 37 Year
  Sex: Male
  Weight: 88.9 kg

DRUGS (7)
  1. OMEPRAZOLE [Suspect]
     Indication: PRODUCT USED FOR UNKNOWN INDICATION
     Dosage: 20 MG, UNKNOWN
     Dates: start: 201106
  2. CIPROFLOXACIN [Suspect]
     Indication: PRODUCT USED FOR UNKNOWN INDICATION
     Dates: start: 201206
  3. DOXYCYCLINE MONOHYDRATE [Suspect]
     Indication: URINARY TRACT INFECTION
     Dates: start: 201111
  4. MINOCYCLINE (MINOCYCLINE) [Suspect]
     Indication: PRODUCT USED FOR UNKNOWN INDICATION
  5. SEROQUEL [Suspect]
     Indication: ANXIETY
  6. NITROFURANTOIN [Suspect]
     Indication: PRODUCT USED FOR UNKNOWN INDICATION
     Dates: start: 201211
  7. LAXIDO [Concomitant]

REACTIONS (34)
  - Vomiting [None]
  - Nausea [None]
  - Malaise [None]
  - Polydipsia [None]
  - Skin disorder [None]
  - Hair disorder [None]
  - Dehydration [None]
  - Photosensitivity reaction [None]
  - Prostatitis [None]
  - Breast inflammation [None]
  - Visual impairment [None]
  - Tendon disorder [None]
  - Gastritis [None]
  - Headache [None]
  - Chromaturia [None]
  - Hormone level abnormal [None]
  - Melanocytic naevus [None]
  - Skin exfoliation [None]
  - Gastrooesophageal reflux disease [None]
  - Tooth disorder [None]
  - Gastric ulcer [None]
  - Toxicity to various agents [None]
  - Hair colour changes [None]
  - Madarosis [None]
  - Bone pain [None]
  - Tendonitis [None]
  - Condition aggravated [None]
  - Gastrointestinal disorder [None]
  - Mass [None]
  - Chromaturia [None]
  - Drug ineffective [None]
  - Irritable bowel syndrome [None]
  - Dental caries [None]
  - Protein total abnormal [None]
